FAERS Safety Report 22166437 (Version 1)
Quarter: 2023Q2

REPORT INFORMATION
  Report Type: Report from Study
  Country: DE (occurrence: DE)
  Receive Date: 20230403
  Receipt Date: 20230403
  Transmission Date: 20230721
  Serious: Yes (Other)
  Sender: FDA-Public Use
  Company Number: DE-NOVPHSZ-PHHY2018DE104863

PATIENT
  Age: 25 Year
  Sex: Female

DRUGS (2)
  1. FILGRASTIM [Suspect]
     Active Substance: FILGRASTIM
     Indication: Stem cell donor
     Dosage: UNK, QD (30 MU / 0.5 ML, 2X)
     Route: 058
     Dates: start: 20120520
  2. FILGRASTIM [Suspect]
     Active Substance: FILGRASTIM
     Dosage: 2700 UG
     Route: 058
     Dates: end: 20120524

REACTIONS (4)
  - Gestational diabetes [Recovered/Resolved]
  - Maternal exposure before pregnancy [Unknown]
  - Normal newborn [Unknown]
  - Delivery [Unknown]

NARRATIVE: CASE EVENT DATE: 20140101
